FAERS Safety Report 5203862-3 (Version None)
Quarter: 2007Q1

REPORT INFORMATION
  Report Type: 
  Country: None (occurrence: None)
  Receive Date: 20070105
  Receipt Date: 20070105
  Transmission Date: 20070707
  Serious: Yes (Hospitalization)
  Sender: FDA-Public Use
  Company Number: None

PATIENT
  Age: 66 Year
  Sex: Male

DRUGS (14)
  1. PREGABALIN [Suspect]
     Indication: DIABETIC NEUROPATHY
     Dosage: 75 MG PO BID
     Route: 048
     Dates: start: 20060501
  2. FLUTICASONE INH [Concomitant]
  3. ALBUTEROL [Concomitant]
  4. ASPIRIN [Concomitant]
  5. CINALCALCET [Concomitant]
  6. MG SULFATE [Concomitant]
  7. METOPROLOL SUCCINATE [Concomitant]
  8. M.V.I. [Concomitant]
  9. NEPHROCAPS [Concomitant]
  10. PREDNISONE TAB [Concomitant]
  11. SENNA [Concomitant]
  12. TACROLIMUS [Concomitant]
  13. KAYEXALATE [Concomitant]
  14. HEPARIN [Concomitant]

REACTIONS (5)
  - CYTOMEGALOVIRUS INFECTION [None]
  - PNEUMONIA [None]
  - PNEUMONIA PRIMARY ATYPICAL [None]
  - PNEUMONITIS [None]
  - PULMONARY OEDEMA [None]
